FAERS Safety Report 8805998 (Version 1)
Quarter: 2012Q4

REPORT INFORMATION
  Report Type: Spontaneous
  Country: US (occurrence: None)
  Receive Date: 20120919
  Receipt Date: 20120919
  Transmission Date: 20130627
  Serious: Yes (Hospitalization)
  Sender: FDA-Public Use
  Company Number: None

PATIENT
  Age: 65 Year
  Sex: Male
  Weight: 158 kg

DRUGS (13)
  1. PRADAXA [Suspect]
     Dosage: 150mg twice daily po
     Route: 048
  2. AMBIEN [Concomitant]
  3. MVI TAB [Concomitant]
  4. ATENOLOL [Concomitant]
  5. AMLODIPINE [Concomitant]
  6. KCL [Concomitant]
  7. MAXZIDE [Concomitant]
  8. LOSARTAN [Concomitant]
  9. DULOXETINE [Concomitant]
  10. SOTALOL [Concomitant]
  11. GABAPENTIN [Concomitant]
  12. ALLOPURINOL [Concomitant]
  13. PERCOCET [Concomitant]

REACTIONS (4)
  - Atrial fibrillation [None]
  - Haemorrhage [None]
  - Haemodialysis [None]
  - Rectal haemorrhage [None]
